FAERS Safety Report 18705569 (Version 7)
Quarter: 2021Q2

REPORT INFORMATION
  Report Type: Spontaneous
  Country: JP (occurrence: JP)
  Receive Date: 20210106
  Receipt Date: 20210629
  Transmission Date: 20210717
  Serious: Yes (Hospitalization, Other)
  Sender: FDA-Public Use
  Company Number: JP-B.I. PHARMACEUTICALS,INC./RIDGEFIELD-2021-BI-074319

PATIENT
  Age: 56 Year
  Sex: Male
  Weight: 96.9 kg

DRUGS (8)
  1. JARDIANCE [Suspect]
     Active Substance: EMPAGLIFLOZIN
     Route: 048
  2. EQUA [Concomitant]
     Active Substance: VILDAGLIPTIN
     Route: 048
     Dates: end: 20200922
  3. EQUA [Concomitant]
     Active Substance: VILDAGLIPTIN
     Route: 048
     Dates: start: 20200924
  4. JARDIANCE [Suspect]
     Active Substance: EMPAGLIFLOZIN
     Indication: TYPE 2 DIABETES MELLITUS
     Route: 048
     Dates: start: 20200915, end: 20200923
  5. METGLUCO [Concomitant]
     Active Substance: METFORMIN HYDROCHLORIDE
     Route: 048
     Dates: end: 20200922
  6. EQUA [Concomitant]
     Active Substance: VILDAGLIPTIN
     Indication: TYPE 2 DIABETES MELLITUS
     Route: 048
     Dates: start: 20200714
  7. METGLUCO [Concomitant]
     Active Substance: METFORMIN HYDROCHLORIDE
     Indication: TYPE 2 DIABETES MELLITUS
     Route: 048
     Dates: start: 20200616
  8. METGLUCO [Concomitant]
     Active Substance: METFORMIN HYDROCHLORIDE
     Route: 048
     Dates: start: 20200924

REACTIONS (1)
  - Cerebral infarction [Recovered/Resolved]

NARRATIVE: CASE EVENT DATE: 20200922
